FAERS Safety Report 9173596 (Version 1)
Quarter: 2013Q1

REPORT INFORMATION
  Report Type: Spontaneous
  Country: US (occurrence: None)
  Receive Date: 20130314
  Receipt Date: 20130314
  Transmission Date: 20140127
  Serious: Yes (Hospitalization, Other)
  Sender: FDA-Public Use
  Company Number: 2013-066

PATIENT
  Age: 64 Year
  Sex: Female

DRUGS (2)
  1. PRIALT (ZICONOTIDE) INTRATHECAL INFUSION [Suspect]
     Indication: PAIN
     Route: 037
     Dates: start: 201211, end: 20121218
  2. PRIALT (ZICONOTIDE) INTRATHECAL INFUSION [Suspect]
     Indication: MUSCLE SPASMS
     Route: 037
     Dates: start: 201211, end: 20121218

REACTIONS (4)
  - Haemorrhage [None]
  - Poisoning [None]
  - Pneumonia [None]
  - Dizziness [None]
